FAERS Safety Report 11004020 (Version 2)
Quarter: 2015Q2

REPORT INFORMATION
  Report Type: Spontaneous
  Country: US (occurrence: US)
  Receive Date: 20150409
  Receipt Date: 20150508
  Transmission Date: 20150821
  Serious: Yes (Hospitalization)
  Sender: FDA-Public Use
  Company Number: US-JNJFOC-20150401301

PATIENT
  Sex: Female

DRUGS (4)
  1. INVOKANA [Suspect]
     Active Substance: CANAGLIFLOZIN
     Indication: TYPE 2 DIABETES MELLITUS
     Route: 048
  2. INVOKANA [Suspect]
     Active Substance: CANAGLIFLOZIN
     Indication: TYPE 2 DIABETES MELLITUS
     Route: 048
  3. HUMALOG [Concomitant]
     Active Substance: INSULIN LISPRO
     Route: 065
  4. NOVOLOG [Concomitant]
     Active Substance: INSULIN ASPART
     Route: 065

REACTIONS (3)
  - Neoplasm malignant [Unknown]
  - Abdominal pain [Unknown]
  - Hepatic enzyme increased [Recovering/Resolving]
